FAERS Safety Report 9194022 (Version 3)
Quarter: 2013Q2

REPORT INFORMATION
  Report Type: Spontaneous
  Country: NL (occurrence: NL)
  Receive Date: 20130327
  Receipt Date: 20130508
  Transmission Date: 20140414
  Serious: Yes (Other)
  Sender: FDA-Public Use
  Company Number: NL-BAXTER-2013BAX010679

PATIENT
  Sex: Male

DRUGS (3)
  1. KIOVIG 100 MG/ML SOLUTION FOR INFUSION INTRAVENOUS USE VIAL (GLASS) 30 [Suspect]
     Indication: PRODUCT USED FOR UNKNOWN INDICATION
     Route: 065
     Dates: start: 20120924, end: 20120924
  2. KIOVIG 100 MG/ML SOLUTION FOR INFUSION INTRAVENOUS USE VIAL (GLASS) 30 [Suspect]
     Route: 065
     Dates: start: 20130104, end: 20130104
  3. KIOVIG 100 MG/ML SOLUTION POUR PERFUSION (10 G/100 ML) [Suspect]
     Indication: PRODUCT USED FOR UNKNOWN INDICATION
     Route: 065
     Dates: start: 20120924, end: 20120924

REACTIONS (4)
  - Urticaria [Unknown]
  - Pruritus generalised [Unknown]
  - Blister [Unknown]
  - Excoriation [Unknown]
